FAERS Safety Report 20135463 (Version 2)
Quarter: 2021Q4

REPORT INFORMATION
  Report Type: Spontaneous
  Country: US (occurrence: US)
  Receive Date: 20211201
  Receipt Date: 20211230
  Transmission Date: 20220304
  Serious: Yes (Other)
  Sender: FDA-Public Use
  Company Number: US-KALA PHARAMACEUTICALS-2021KLA00116

PATIENT
  Age: 69 Year
  Sex: Female
  Weight: 56.689 kg

DRUGS (1)
  1. EYSUVIS [Suspect]
     Active Substance: LOTEPREDNOL ETABONATE
     Indication: Chalazion
     Dosage: 1 DROP, 2X/DAY
     Route: 047
     Dates: start: 20200408, end: 202004

REACTIONS (5)
  - Astigmatism [Not Recovered/Not Resolved]
  - Vision blurred [Not Recovered/Not Resolved]
  - Cataract [Recovered/Resolved]
  - Eye discharge [Not Recovered/Not Resolved]
  - Off label use [Recovered/Resolved]

NARRATIVE: CASE EVENT DATE: 20200408
